FAERS Safety Report 5760662-3 (Version None)
Quarter: 2008Q2

REPORT INFORMATION
  Report Type: 
  Country: None (occurrence: None)
  Receive Date: 20080606
  Receipt Date: 20080525
  Transmission Date: 20081010
  Serious: Yes (Other)
  Sender: FDA-Public Use
  Company Number: NL-WYE-H04303408

PATIENT
  Age: 77 Year
  Sex: Female

DRUGS (3)
  1. PANTOPRAZOLE SODIUM [Suspect]
     Indication: GASTROOESOPHAGEAL REFLUX DISEASE
     Dosage: UNKNOWN
     Dates: start: 20071001
  2. THYRAX [Concomitant]
     Dosage: UNKNOWN
  3. LOSARTAN POTASSIUM [Concomitant]
     Dosage: 50 MG
     Route: 048

REACTIONS (1)
  - GASTRIC POLYPS [None]
